FAERS Safety Report 5718342-6 (Version None)
Quarter: 2008Q2

REPORT INFORMATION
  Report Type: 
  Country: None (occurrence: None)
  Receive Date: 20080425
  Receipt Date: 20080422
  Transmission Date: 20081010
  Serious: Yes (Hospitalization)
  Sender: FDA-Public Use
  Company Number: JP-BRISTOL-MYERS SQUIBB COMPANY-14161053

PATIENT
  Age: 76 Year
  Sex: Female
  Weight: 40 kg

DRUGS (4)
  1. CISPLATIN [Suspect]
     Indication: PLEURAL MESOTHELIOMA MALIGNANT
     Dosage: INITIAL DOSE- 13JUN07.2ND DOSE- 50MG;IV,02JUL07-06NOV07;128DAYS.MOST RECENT DOSE ON 06NOV07.
     Route: 042
     Dates: start: 20070613, end: 20070613
  2. ALIMTA [Suspect]
     Indication: PLEURAL MESOTHELIOMA MALIGNANT
     Dosage: DISCONTINUED ON 19-NOV-2007.
     Route: 042
     Dates: start: 20070613, end: 20071106
  3. FOLIAMIN [Concomitant]
     Dates: start: 20070613, end: 20071113
  4. CYANOCOBALAMIN [Concomitant]
     Dates: start: 20070606, end: 20070606

REACTIONS (7)
  - ALTERED STATE OF CONSCIOUSNESS [None]
  - DEMENTIA [None]
  - HAEMOGLOBIN DECREASED [None]
  - LYMPHOCYTE COUNT DECREASED [None]
  - MALAISE [None]
  - PYREXIA [None]
  - RESTLESSNESS [None]
